FAERS Safety Report 9249990 (Version 2)
Quarter: 2013Q2

REPORT INFORMATION
  Report Type: Spontaneous
  Country: JP (occurrence: JP)
  Receive Date: 20130424
  Receipt Date: 20130501
  Transmission Date: 20140414
  Serious: Yes (Other)
  Sender: FDA-Public Use
  Company Number: JP-ROCHE-1217101

PATIENT
  Age: 72 Year
  Sex: Male

DRUGS (2)
  1. ROCEPHIN [Suspect]
     Indication: PYELONEPHRITIS ACUTE
     Route: 042
  2. TEICOPLANIN [Suspect]
     Indication: PRODUCT USED FOR UNKNOWN INDICATION
     Route: 065

REACTIONS (3)
  - Erythema multiforme [Recovering/Resolving]
  - Disseminated intravascular coagulation [Recovering/Resolving]
  - Systemic inflammatory response syndrome [Recovering/Resolving]
